FAERS Safety Report 24670438 (Version 1)
Quarter: 2024Q4

REPORT INFORMATION
  Report Type: Spontaneous
  Country: US (occurrence: None)
  Receive Date: 20241126
  Receipt Date: 20241126
  Transmission Date: 20250115
  Serious: Yes (Hospitalization, Other)
  Sender: Public
  Company Number: None

PATIENT
  Age: 66 Year
  Sex: Female
  Weight: 79.5 kg

DRUGS (2)
  1. VANCOMYCIN [Suspect]
     Active Substance: VANCOMYCIN
     Indication: Wound
     Dosage: OTHER FREQUENCY : ONCE;?
     Route: 041
     Dates: start: 20240810, end: 20240810
  2. CEFTAZIDIME [Suspect]
     Active Substance: CEFTAZIDIME
     Indication: Wound
     Dosage: OTHER FREQUENCY : EVERY TREATMENT;?
     Route: 040
     Dates: start: 20240810, end: 20240810

REACTIONS (8)
  - Pruritus [None]
  - Restlessness [None]
  - Nausea [None]
  - Flushing [None]
  - Dysarthria [None]
  - Pain [None]
  - Hypotension [None]
  - Drug hypersensitivity [None]

NARRATIVE: CASE EVENT DATE: 20240810
